FAERS Safety Report 11645143 (Version 2)
Quarter: 2015Q4

REPORT INFORMATION
  Report Type: Spontaneous
  Country: US (occurrence: US)
  Receive Date: 20151020
  Receipt Date: 20151118
  Transmission Date: 20160304
  Serious: Yes (Other)
  Sender: FDA-Public Use
  Company Number: US-ALLERGAN-1521408US

PATIENT
  Age: 64 Year
  Sex: Male

DRUGS (5)
  1. PRED FORTE [Suspect]
     Active Substance: PREDNISOLONE ACETATE
     Indication: OPEN ANGLE GLAUCOMA
     Dosage: 2 GTT, QHS
     Route: 047
     Dates: start: 20150611, end: 20151103
  2. ASPIRIN. [Concomitant]
     Active Substance: ASPIRIN
     Dosage: EVERY OTHER DAY
  3. COMBIGAN [Suspect]
     Active Substance: BRIMONIDINE TARTRATE\TIMOLOL MALEATE
     Indication: OPEN ANGLE GLAUCOMA
     Dosage: 2 GTT, QHS
     Route: 047
     Dates: start: 20150204, end: 20151103
  4. LUMIGAN [Suspect]
     Active Substance: BIMATOPROST
     Indication: OPEN ANGLE GLAUCOMA
     Dosage: 2 GTT, QHS
     Route: 047
     Dates: start: 20141021
  5. LATANOPROST. [Concomitant]
     Active Substance: LATANOPROST
     Indication: PRODUCT USED FOR UNKNOWN INDICATION
     Route: 047

REACTIONS (2)
  - Cardiac disorder [Unknown]
  - Blindness [Not Recovered/Not Resolved]
